FAERS Safety Report 7219405-9 (Version None)
Quarter: 2011Q1

REPORT INFORMATION
  Report Type: 
  Country: None (occurrence: None)
  Receive Date: 20110111
  Receipt Date: 20110105
  Transmission Date: 20110831
  Serious: No
  Sender: FDA-Public Use
  Company Number: US-PFIZER INC-2011003201

PATIENT
  Sex: Male
  Weight: 68.9 kg

DRUGS (1)
  1. PRISTIQ [Suspect]
     Indication: DEPRESSION
     Dosage: 50 MG, 1X/DAY
     Route: 048
     Dates: start: 20110104

REACTIONS (5)
  - INSOMNIA [None]
  - EMOTIONAL DISORDER [None]
  - NAUSEA [None]
  - DISCOMFORT [None]
  - FATIGUE [None]
